FAERS Safety Report 19532770 (Version 1)
Quarter: 2021Q3

REPORT INFORMATION
  Report Type: Other
  Country: ES (occurrence: ES)
  Receive Date: 20210713
  Receipt Date: 20210713
  Transmission Date: 20211014
  Serious: Yes (Life-Threatening, Hospitalization)
  Sender: FDA-Public Use
  Company Number: ES-ROCHE-2650818

PATIENT
  Age: 56 Year
  Sex: Female

DRUGS (8)
  1. ENVARSUS XR [Suspect]
     Active Substance: TACROLIMUS
     Indication: IMMUNOSUPPRESSANT DRUG THERAPY
     Route: 065
  2. MEROPENEM. [Concomitant]
     Active Substance: MEROPENEM
  3. INSULIN [Concomitant]
     Active Substance: INSULIN NOS
  4. EMPAGLIFLOZIN [Suspect]
     Active Substance: EMPAGLIFLOZIN
     Indication: DIABETES MELLITUS
     Route: 065
  5. MYCOPHENOLATE MOFETIL. [Suspect]
     Active Substance: MYCOPHENOLATE MOFETIL
     Indication: IMMUNOSUPPRESSANT DRUG THERAPY
     Dosage: UNK
     Route: 065
  6. PREDNISONE. [Suspect]
     Active Substance: PREDNISONE
     Indication: IMMUNOSUPPRESSANT DRUG THERAPY
     Dosage: UNK
     Route: 065
  7. AMPHOTERICIN B. [Suspect]
     Active Substance: AMPHOTERICIN B
     Indication: EMPHYSEMATOUS PYELONEPHRITIS
  8. AMPHOTERICIN B. [Suspect]
     Active Substance: AMPHOTERICIN B
     Indication: CANDIDA INFECTION
     Dosage: UNK
     Route: 065

REACTIONS (19)
  - Candida infection [Recovering/Resolving]
  - Oliguria [Unknown]
  - Systemic candida [Recovered/Resolved]
  - Off label use [Unknown]
  - Renal impairment [Unknown]
  - Septic shock [Recovered/Resolved]
  - Urinary tract candidiasis [Recovered/Resolved]
  - Candida sepsis [Recovered/Resolved]
  - Emphysematous pyelonephritis [Recovering/Resolving]
  - Urinary tract infection enterococcal [Recovered/Resolved]
  - Drug ineffective [Unknown]
  - Hypotension [Unknown]
  - Coagulation test abnormal [Recovered/Resolved]
  - Therapy non-responder [Unknown]
  - Urinary tract infection [Recovered/Resolved]
  - Coagulopathy [Recovered/Resolved]
  - Vesicoureteric reflux [Unknown]
  - Emphysematous pyelonephritis [Recovered/Resolved]
  - Perinephric abscess [Recovered/Resolved]
